FAERS Safety Report 5164833-9 (Version None)
Quarter: 2006Q4

REPORT INFORMATION
  Report Type: 
  Country: None (occurrence: None)
  Receive Date: 20061124
  Receipt Date: 20061109
  Transmission Date: 20070319
  Serious: Yes (Other)
  Sender: FDA-Public Use
  Company Number: 149768ISR

PATIENT
  Age: 41 Year
  Sex: Female

DRUGS (1)
  1. PROPRANOLOL [Suspect]
     Indication: ANXIETY
     Dosage: (40 MG) ORAL
     Route: 048
     Dates: start: 20061019, end: 20061019

REACTIONS (2)
  - DEAFNESS TRANSITORY [None]
  - SINUS CONGESTION [None]
